FAERS Safety Report 6814718-4 (Version None)
Quarter: 2010Q3

REPORT INFORMATION
  Report Type: 
  Country: None (occurrence: None)
  Receive Date: 20100702
  Receipt Date: 20100618
  Transmission Date: 20110219
  Serious: Yes (Other)
  Sender: FDA-Public Use
  Company Number: IL-WATSON-2010-08558

PATIENT
  Age: 49 Year
  Sex: Male

DRUGS (1)
  1. ALBUTEROL SULFATE (WATSON LABORATORIES) [Suspect]
     Indication: ASTHMA
     Dosage: UNK
     Route: 055

REACTIONS (2)
  - TACHYARRHYTHMIA [None]
  - VENTRICULAR TACHYCARDIA [None]
